FAERS Safety Report 20187396 (Version 1)
Quarter: 2021Q4

REPORT INFORMATION
  Report Type: Spontaneous
  Country: US (occurrence: None)
  Receive Date: 20211214
  Receipt Date: 20211214
  Transmission Date: 20220303
  Serious: Yes (Life-Threatening)
  Sender: FDA-Public Use
  Company Number: None

PATIENT
  Age: 72 Year
  Sex: Male
  Weight: 81.9 kg

DRUGS (1)
  1. BENZONATATE [Suspect]
     Active Substance: BENZONATATE
     Indication: Cough
     Dosage: OTHER QUANTITY : 2 CAPSULE(S);?FREQUENCY : 3 TIMES A DAY;?
     Route: 048
     Dates: start: 20211214, end: 20211214

REACTIONS (3)
  - Head injury [None]
  - Swelling face [None]
  - Fall [None]

NARRATIVE: CASE EVENT DATE: 20211214
